FAERS Safety Report 8151304-0 (Version None)
Quarter: 2012Q1

REPORT INFORMATION
  Report Type: 
  Country: None (occurrence: None)
  Receive Date: 20120220
  Receipt Date: 20120210
  Transmission Date: 20120608
  Serious: Yes (Other)
  Sender: FDA-Public Use
  Company Number: US-MILLENNIUM PHARMACEUTICALS, INC.-2012-01009

PATIENT
  Age: 54 Year
  Sex: Male

DRUGS (6)
  1. TACROLIMUS [Suspect]
     Indication: TRANSPLANT REJECTION
  2. VELCADE [Suspect]
     Indication: TRANSPLANT REJECTION
     Dosage: 1.3 MG/M2, CYCLIC
  3. IMMUNE GLOBULIN NOS [Suspect]
     Indication: TRANSPLANT REJECTION
  4. ECULIZUMAB [Suspect]
     Indication: TRANSPLANT REJECTION
     Dosage: 1200 MG, UNK
  5. ECULIZUMAB [Suspect]
     Dosage: 600 MG, UNK
  6. ANTI-THYMOCYTE GLOBULIN EQUINE NOS [Suspect]
     Indication: TRANSPLANT REJECTION
     Dosage: 1.5 MG/KG, CYCLIC

REACTIONS (2)
  - HAEMOGLOBIN DECREASED [None]
  - KIDNEY TRANSPLANT REJECTION [None]
